FAERS Safety Report 4708003-4 (Version None)
Quarter: 2005Q2

REPORT INFORMATION
  Report Type: 
  Country: None (occurrence: None)
  Receive Date: 20050629
  Receipt Date: 20050322
  Transmission Date: 20051028
  Serious: No
  Sender: FDA-Public Use
  Company Number: 05P-163-0294849-00

PATIENT
  Age: 68 Year
  Sex: Female
  Weight: 74.8435 kg

DRUGS (7)
  1. HUMIRA [Suspect]
     Indication: RHEUMATOID ARTHRITIS
     Dosage: 40 MG, 1 IN 2 WK, SUBCUTANEOUS
     Route: 058
     Dates: start: 20041101
  2. AMITRIPTYLINE HCL [Concomitant]
  3. TAROXETINE [Concomitant]
  4. FOLIC ACID [Concomitant]
  5. METHOTREXATE [Concomitant]
  6. METOPROLOL SUCCINATE [Concomitant]
  7. VYTROIN [Concomitant]

REACTIONS (3)
  - INJECTION SITE RASH [None]
  - RENAL FUNCTION TEST ABNORMAL [None]
  - RHEUMATOID ARTHRITIS [None]
